FAERS Safety Report 9343910 (Version 3)
Quarter: 2014Q1

REPORT INFORMATION
  Report Type: Spontaneous
  Country: US (occurrence: US)
  Receive Date: 20130612
  Receipt Date: 20140211
  Transmission Date: 20141002
  Serious: Yes (Disabling, Other)
  Sender: FDA-Public Use
  Company Number: US-BAYER-2013-072064

PATIENT
  Age: 42 Year
  Sex: Female
  Weight: 58.05 kg

DRUGS (8)
  1. YAZ [Suspect]
     Indication: CONTRACEPTION
     Dosage: UNK
     Dates: start: 200704, end: 201005
  2. YASMIN [Suspect]
     Indication: CONTRACEPTION
     Dosage: UNK
     Dates: start: 200704, end: 201005
  3. PREDNISONE [Concomitant]
  4. TORADOL [Concomitant]
     Indication: PAIN
  5. FLEXERIL [Concomitant]
  6. NAPROSYN [Concomitant]
  7. METHYLPREDNISOLONE [Concomitant]
     Indication: ANTIINFLAMMATORY THERAPY
     Dosage: UNK
     Dates: start: 20100430
  8. ADVIL [Concomitant]
     Indication: ANTIINFLAMMATORY THERAPY
     Dosage: UNK
     Dates: start: 201004

REACTIONS (9)
  - Deep vein thrombosis [None]
  - Injury [None]
  - Pain [None]
  - Anxiety [None]
  - Anhedonia [None]
  - Pain [None]
  - Thrombophlebitis superficial [None]
  - Mental disorder [None]
  - Deep vein thrombosis [None]
